FAERS Safety Report 25699637 (Version 1)
Quarter: 2025Q3

REPORT INFORMATION
  Report Type: Spontaneous
  Country: US (occurrence: None)
  Receive Date: 20250818
  Receipt Date: 20250818
  Transmission Date: 20251020
  Serious: Yes (Death)
  Sender: FDA-CTU
  Company Number: None

PATIENT
  Age: 64 Year
  Sex: Female

DRUGS (2)
  1. APIXABAN [Suspect]
     Active Substance: APIXABAN
  2. ENOXAPARIN [Suspect]
     Active Substance: ENOXAPARIN

REACTIONS (10)
  - Chronic obstructive pulmonary disease [None]
  - Pneumonia [None]
  - Liver function test increased [None]
  - Dyspepsia [None]
  - Atrial fibrillation [None]
  - Agitation [None]
  - Delirium [None]
  - Retroperitoneal haematoma [None]
  - Haemoglobin decreased [None]
  - Acute kidney injury [None]

NARRATIVE: CASE EVENT DATE: 20240628
